FAERS Safety Report 4989625-2 (Version None)
Quarter: 2006Q2

REPORT INFORMATION
  Report Type: 
  Country: None (occurrence: None)
  Receive Date: 20060425
  Receipt Date: 20060413
  Transmission Date: 20061013
  Serious: Yes (Hospitalization)
  Sender: FDA-Public Use
  Company Number: 230847K06USA

PATIENT
  Age: 50 Year
  Sex: Female

DRUGS (5)
  1. REBIF [Suspect]
     Indication: MULTIPLE SCLEROSIS
     Dosage: SEE IMAGE
     Route: 058
     Dates: start: 20060108, end: 20060101
  2. REBIF [Suspect]
     Indication: MULTIPLE SCLEROSIS
     Dosage: SEE IMAGE
     Route: 058
     Dates: start: 20060101, end: 20060201
  3. REBIF [Suspect]
     Indication: MULTIPLE SCLEROSIS
     Dosage: SEE IMAGE
     Route: 058
     Dates: start: 20060301, end: 20060401
  4. REBIF [Suspect]
     Indication: MULTIPLE SCLEROSIS
     Dosage: SEE IMAGE
     Route: 058
     Dates: start: 20060410
  5. DECADRON (DEXAMETHASONE /00016001/) [Concomitant]

REACTIONS (5)
  - HYPERSENSITIVITY [None]
  - INFLUENZA LIKE ILLNESS [None]
  - PRURITUS [None]
  - RASH [None]
  - RESPIRATORY RATE INCREASED [None]
